FAERS Safety Report 19840583 (Version 2)
Quarter: 2021Q4

REPORT INFORMATION
  Report Type: Report from Study
  Country: US (occurrence: US)
  Receive Date: 20210916
  Receipt Date: 20211217
  Transmission Date: 20220303
  Serious: Yes (Other)
  Sender: FDA-Public Use
  Company Number: US-UNITED THERAPEUTICS-UNT-2021-015600

PATIENT
  Sex: Female
  Weight: 84.807 kg

DRUGS (6)
  1. TREPROSTINIL SODIUM [Suspect]
     Active Substance: TREPROSTINIL SODIUM
     Indication: Pulmonary arterial hypertension
     Dosage: UNK
     Dates: start: 20130730
  2. TREPROSTINIL SODIUM [Suspect]
     Active Substance: TREPROSTINIL SODIUM
     Dosage: 18-54 ?G, QID
  3. TREPROSTINIL SODIUM [Suspect]
     Active Substance: TREPROSTINIL SODIUM
     Dosage: 18-54 ?G, QID
  4. TREPROSTINIL SODIUM [Suspect]
     Active Substance: TREPROSTINIL SODIUM
     Dosage: 18-60 ?G, QID
  5. BOSENTAN [Concomitant]
     Active Substance: BOSENTAN
     Indication: Product used for unknown indication
     Dosage: 125 MG
     Route: 065
  6. ELIQUIS [Concomitant]
     Active Substance: APIXABAN
     Indication: Product used for unknown indication
     Dosage: UNK
     Route: 065

REACTIONS (3)
  - Dementia Alzheimer^s type [Unknown]
  - Choking [Unknown]
  - Incorrect dose administered [Unknown]
